FAERS Safety Report 5809331-1 (Version None)
Quarter: 2008Q3

REPORT INFORMATION
  Report Type: 
  Country: None (occurrence: None)
  Receive Date: 20080714
  Receipt Date: 20080702
  Transmission Date: 20090109
  Serious: Yes (Disabling, Other)
  Sender: FDA-Public Use
  Company Number: PHHY2008JP12288

PATIENT
  Age: 72 Year

DRUGS (3)
  1. GLEEVEC [Suspect]
     Indication: CHRONIC MYELOID LEUKAEMIA
     Dosage: 400 MG, QD
     Route: 048
     Dates: start: 20040801
  2. GLEEVEC [Suspect]
     Dosage: UNK
  3. GLEEVEC [Suspect]
     Dosage: 300 MG, QD
     Route: 048

REACTIONS (4)
  - CHRONIC RESPIRATORY FAILURE [None]
  - LEUKOPENIA [None]
  - RASH [None]
  - THROMBOCYTOPENIA [None]
